FAERS Safety Report 9927871 (Version 1)
Quarter: 2014Q1

REPORT INFORMATION
  Report Type: Spontaneous
  Country: ES (occurrence: None)
  Receive Date: 20140221
  Receipt Date: 20140221
  Transmission Date: 20141002
  Serious: Yes (Other)
  Sender: FDA-Public Use
  Company Number: 2014-000320

PATIENT
  Sex: 0

DRUGS (1)
  1. ACTONEL (RISEDRONATE SODIUM) TABLET [Suspect]
     Indication: OSTEOPOROSIS
     Route: 048

REACTIONS (4)
  - Osteomyelitis [None]
  - Exposed bone in jaw [None]
  - Oral infection [None]
  - Osteonecrosis of jaw [None]
